FAERS Safety Report 10693712 (Version 1)
Quarter: 2015Q1

REPORT INFORMATION
  Report Type: Spontaneous
  Country: US (occurrence: US)
  Receive Date: 20150106
  Receipt Date: 20150106
  Transmission Date: 20150721
  Serious: No
  Sender: FDA-Public Use
  Company Number: US-ASTRAZENECA-2014SE84056

PATIENT
  Sex: Female

DRUGS (3)
  1. ZESTORETIC [Suspect]
     Active Substance: HYDROCHLOROTHIAZIDE\LISINOPRIL
     Indication: BLOOD PRESSURE ABNORMAL
     Route: 048
  2. CRESTOR [Suspect]
     Active Substance: ROSUVASTATIN CALCIUM
     Indication: BLOOD CHOLESTEROL ABNORMAL
     Route: 048
  3. FISH OIL [Concomitant]
     Active Substance: FISH OIL

REACTIONS (4)
  - Dizziness [Unknown]
  - Blood cholesterol increased [Unknown]
  - Blood pressure abnormal [Unknown]
  - Drug hypersensitivity [Unknown]
